FAERS Safety Report 5908730-7 (Version None)
Quarter: 2008Q4

REPORT INFORMATION
  Report Type: 
  Country: None (occurrence: None)
  Receive Date: 20081006
  Receipt Date: 20080926
  Transmission Date: 20090506
  Serious: Yes (Other)
  Sender: FDA-Public Use
  Company Number: B0538810A

PATIENT
  Sex: Female

DRUGS (6)
  1. SEREVENT [Suspect]
     Indication: ASTHMA
     Route: 055
     Dates: start: 20061101, end: 20080101
  2. SERETIDE [Suspect]
     Indication: ASTHMA
     Route: 055
     Dates: start: 20080807
  3. OVESTIN [Concomitant]
     Route: 067
     Dates: start: 20070801
  4. SALBUTAMOL [Concomitant]
     Indication: ASTHMA
     Route: 055
     Dates: start: 20030101
  5. ANTIBIOTICS [Concomitant]
  6. STEROIDS [Concomitant]
     Route: 048

REACTIONS (2)
  - FREEZING PHENOMENON [None]
  - MUSCLE SPASMS [None]
